FAERS Safety Report 16659732 (Version 1)
Quarter: 2019Q3

REPORT INFORMATION
  Report Type: Spontaneous
  Country: ES (occurrence: ES)
  Receive Date: 20190802
  Receipt Date: 20190802
  Transmission Date: 20191004
  Serious: Yes (Other)
  Sender: FDA-Public Use
  Company Number: ES-TEVA-2019-ES-1086821

PATIENT
  Age: 75 Year
  Sex: Female
  Weight: 85 kg

DRUGS (9)
  1. A.A.S. 100 MG COMPRIMIDOS [Concomitant]
     Indication: ANGINA PECTORIS
     Dosage: 100 MILLIGRAM PER 1 DAY
     Route: 048
     Dates: start: 20180820
  2. EUTIROX 50 MICROGRAMOS COMPRIMIDOS [Concomitant]
     Indication: HYPOTHYROIDISM
     Dosage: 50 MICROGRAM PER 1 DAY
     Route: 048
     Dates: start: 20180820
  3. BISOPROLOL 5 MG COMPRIMIDO [Suspect]
     Active Substance: BISOPROLOL
     Indication: ANGINA PECTORIS
     Dosage: 5 MILLIGRAM PER 12 HOURS
     Route: 048
     Dates: start: 20190520
  4. RANEXA [Suspect]
     Active Substance: RANOLAZINE
     Indication: ANGINA PECTORIS
     Dosage: 60 TABLETS ; 375 MILLIGRAM PER 12 HOURS
     Route: 048
     Dates: start: 20190520, end: 20190522
  5. CETIRIZINA 10 MG COMPRIMIDO [Concomitant]
     Indication: HYPERSENSITIVITY
     Dosage: 10 MILLIGRAM PER 1 DAY
     Route: 048
     Dates: start: 20180820
  6. ENALAPRIL 5 MG COMPRIMIDO [Concomitant]
     Indication: ANGINA PECTORIS
     Dosage: 5 MILLIGRAM PER 1 DAY
     Route: 048
     Dates: start: 20180820
  7. LIVAZO 2 MG COMPRIMIDOS RECUBIERTOS CON PELICULA , 28 COMPRIMIDOS [Concomitant]
     Indication: HYPERCHOLESTEROLAEMIA
     Dosage: 2 MILLIGRAM PER 1 DAY ; 28 TABLETS
     Route: 048
     Dates: start: 20190225
  8. SOLINITRINA 0,8 MG COMPRIMIDOS RECUBIERTOS SUBLINGUALES , 30 COMPRIMID [Concomitant]
     Indication: ANGINA PECTORIS
     Dosage: OCCASIONAL ;  0.8 MILLIGRAM 1 AS REQUIRED ; 30 TABLETS
     Route: 060
     Dates: start: 20180820
  9. FLIXOTIDE 250 MICROGRAMOS, SUSPENSI?N PARA INHALACI?N EN ENVASE A PRES [Concomitant]
     Indication: ASTHMA
     Dosage: 250 MICROGRAM PER 12 HOURS
     Route: 055
     Dates: start: 20180820

REACTIONS (4)
  - Disorientation [Recovered/Resolved with Sequelae]
  - Loss of consciousness [Recovered/Resolved with Sequelae]
  - Tachycardia [Recovered/Resolved with Sequelae]
  - Dizziness [Recovered/Resolved with Sequelae]

NARRATIVE: CASE EVENT DATE: 20190520
